FAERS Safety Report 10149197 (Version 1)
Quarter: 2014Q2

REPORT INFORMATION
  Report Type: Spontaneous
  Country: US (occurrence: US)
  Receive Date: 20140502
  Receipt Date: 20140502
  Transmission Date: 20141212
  Serious: No
  Sender: FDA-Public Use
  Company Number: US-TARO-2013P1016112

PATIENT
  Age: 66 Year
  Sex: Male
  Weight: 117.94 kg

DRUGS (23)
  1. CARBAMAZEPINE EXTENDED RELEASE TABLETS USP 400MG [Suspect]
     Indication: NEUROPATHY PERIPHERAL
     Route: 048
     Dates: start: 201207
  2. CARBAMAZEPINE EXTENDED RELEASE 400 MG (SANDOZ) [Suspect]
     Indication: NEUROPATHY PERIPHERAL
     Route: 048
  3. METFORMIN [Concomitant]
  4. NABUMETONE [Concomitant]
  5. TRIAMTERENE [Concomitant]
  6. LEVOTHYROXINE [Concomitant]
  7. LISINOPRIL [Concomitant]
  8. GLUCOSAMINE SULFATE [Concomitant]
  9. CALCIUM [Concomitant]
  10. LECITHIN [Concomitant]
  11. HYALURONIC ACID [Concomitant]
  12. FOLIC ACID [Concomitant]
  13. POTASSIUM [Concomitant]
  14. VITAMIN D3 [Concomitant]
  15. VITAMIN B12 [Concomitant]
     Route: 060
  16. COQ10 [Concomitant]
  17. GRAPESEED [Concomitant]
  18. TURMERIC [Concomitant]
  19. CHROMIUM [Concomitant]
  20. RESVERATROL [Concomitant]
  21. VITAMIN C [Concomitant]
  22. CINNAMON [Concomitant]
  23. MAGNESIUM [Concomitant]

REACTIONS (4)
  - Medication residue present [Not Recovered/Not Resolved]
  - Drug ineffective for unapproved indication [Not Recovered/Not Resolved]
  - Neuropathy peripheral [Not Recovered/Not Resolved]
  - Drug dispensing error [Unknown]
